FAERS Safety Report 8976970 (Version 1)
Quarter: 2012Q4

REPORT INFORMATION
  Report Type: 
  Country: US (occurrence: US)
  Receive Date: 20121220
  Receipt Date: 20121220
  Transmission Date: 20130627
  Serious: No
  Sender: FDA-Public Use
  Company Number: US-GLAXOSMITHKLINE-A0958946A

PATIENT
  Sex: Female

DRUGS (2)
  1. SORIATANE [Suspect]
     Route: 048
  2. UNKNOWN MEDICATION [Suspect]
     Indication: MALIGNANT MELANOMA

REACTIONS (1)
  - Alopecia [Unknown]
